FAERS Safety Report 7842726-3 (Version None)
Quarter: 2011Q4

REPORT INFORMATION
  Report Type: 
  Country: None (occurrence: None)
  Receive Date: 20111025
  Receipt Date: 20111020
  Transmission Date: 20120403
  Serious: Yes (Other)
  Sender: FDA-Public Use
  Company Number: CA-PFIZER INC-2011254857

PATIENT
  Sex: Female

DRUGS (1)
  1. VARENICLINE TARTRATE [Suspect]
     Indication: SMOKING CESSATION THERAPY
     Dosage: UNK
     Dates: start: 20111001, end: 20111019

REACTIONS (6)
  - HOMICIDAL IDEATION [None]
  - FEELING ABNORMAL [None]
  - DECREASED INTEREST [None]
  - EYE OEDEMA [None]
  - CRYING [None]
  - MOOD SWINGS [None]
